FAERS Safety Report 4553329-0 (Version None)
Quarter: 2005Q1

REPORT INFORMATION
  Report Type: 
  Country: None (occurrence: None)
  Receive Date: 20050112
  Receipt Date: 20041229
  Transmission Date: 20050727
  Serious: Yes (Hospitalization)
  Sender: FDA-Public Use
  Company Number: DE_041114778

PATIENT
  Age: 61 Year
  Sex: Male
  Weight: 80 kg

DRUGS (6)
  1. PARKOTIL           (PERGOLIDE MESILATE) [Suspect]
     Indication: PARKINSON'S DISEASE
     Dosage: 2.5 MG DAY
  2. MADOPAR DEPOT [Concomitant]
  3. SELEGAM      (SELEGILINE HYDROCHLORIDE) [Concomitant]
  4. VIAGRA [Concomitant]
  5. UROXATRAL [Concomitant]
  6. CIALIS [Concomitant]

REACTIONS (3)
  - CARDIAC FAILURE [None]
  - CONGESTIVE CARDIOMYOPATHY [None]
  - MITRAL VALVE INCOMPETENCE [None]
